FAERS Safety Report 5861096-3 (Version None)
Quarter: 2008Q3

REPORT INFORMATION
  Report Type: 
  Country: None (occurrence: None)
  Receive Date: 20080827
  Receipt Date: 20080220
  Transmission Date: 20090109
  Serious: Yes (Hospitalization)
  Sender: FDA-Public Use
  Company Number: US-ABBOTT-08P-163-0439027-00

PATIENT
  Sex: Female

DRUGS (1)
  1. COATED PDS [Suspect]
     Indication: DRUG USE FOR UNKNOWN INDICATION
     Dates: start: 20080216

REACTIONS (2)
  - FLUSHING [None]
  - LOSS OF CONSCIOUSNESS [None]
